FAERS Safety Report 8905732 (Version 2)
Quarter: 2012Q4

REPORT INFORMATION
  Report Type: 
  Country: JP (occurrence: JP)
  Receive Date: 20121111
  Receipt Date: 20121124
  Transmission Date: 20130627
  Serious: Yes (Other)
  Sender: FDA-Public Use
  Company Number: PHHY2012JP103100

PATIENT
  Sex: Female

DRUGS (3)
  1. ZOLEDRONATE [Suspect]
     Indication: METASTASES TO BONE
     Dosage: UNK
     Route: 041
     Dates: start: 2005, end: 2009
  2. PAMIDRONATE DISODIUM [Suspect]
     Indication: METASTASES TO BONE
     Dosage: UNK
     Route: 041
     Dates: start: 2005, end: 2009
  3. EXEMESTANE [Suspect]
     Indication: METASTASES TO BONE
     Dosage: UNK
     Route: 048
     Dates: start: 2005, end: 2009

REACTIONS (8)
  - Osteonecrosis of jaw [Unknown]
  - Condition aggravated [Unknown]
  - Dementia [Recovering/Resolving]
  - Asthenia [Unknown]
  - Loose tooth [Unknown]
  - Toothache [Unknown]
  - Exposed bone in jaw [Unknown]
  - Purulent discharge [Recovering/Resolving]
